FAERS Safety Report 24234043 (Version 2)
Quarter: 2024Q3

REPORT INFORMATION
  Report Type: Spontaneous
  Country: DE (occurrence: DE)
  Receive Date: 20240821
  Receipt Date: 20240926
  Transmission Date: 20241017
  Serious: Yes (Other)
  Sender: SANDOZ
  Company Number: DE-BRISTOL-MYERS SQUIBB COMPANY-2024-126472

PATIENT
  Age: 75 Year
  Sex: Female

DRUGS (9)
  1. CARFILZOMIB [Suspect]
     Active Substance: CARFILZOMIB
     Indication: Plasma cell myeloma
     Dosage: 2 CYCLES OF CARFILZOMIB/LENALIDOMIDE/DEXA [DEXAMETHASONE]UNK
     Route: 065
     Dates: start: 201811
  2. CARFILZOMIB [Suspect]
     Active Substance: CARFILZOMIB
     Dosage: 2 CYCLES OF CARFILZOMIB/LENALIDOMIDE/DEXA [DEXAMETHASONE]UNK
     Route: 065
     Dates: start: 202106, end: 202203
  3. DEXAMETHASONE [Suspect]
     Active Substance: DEXAMETHASONE
     Indication: Plasma cell myeloma
     Dosage: 2 CYCLES OF CARFILZOMIB/LENALIDOMIDE/DEXA [DEXAMETHASONE]UNK START DATE ??-NOV-2018
     Route: 065
  4. DEXAMETHASONE [Suspect]
     Active Substance: DEXAMETHASONE
     Dosage: UNK
     Route: 065
     Dates: start: 202203
  5. DEXAMETHASONE [Suspect]
     Active Substance: DEXAMETHASONE
     Dosage: UNK
     Route: 065
     Dates: start: 202311
  6. DEXAMETHASONE [Suspect]
     Active Substance: DEXAMETHASONE
     Dosage: UNK, START DATE ??-JUN-2021
     Route: 065
     Dates: end: 202203
  7. DEXAMETHASONE [Suspect]
     Active Substance: DEXAMETHASONE
     Dosage: UNK, START DATE ??-SEP-2018
     Route: 065
     Dates: end: 201811
  8. REVLIMID [Suspect]
     Active Substance: LENALIDOMIDE
     Indication: Plasma cell myeloma
     Dosage: NOV-18 2 CYCLES OF CARFILZOMIB/LENALIDOMIDE/DEXA [DEXAMETHASONE]UNK
     Route: 065
     Dates: start: 201811, end: 201910
  9. REVLIMID [Suspect]
     Active Substance: LENALIDOMIDE
     Dosage: UNK, START DATE ??-APR-2021
     Route: 065

REACTIONS (1)
  - Plasma cell myeloma [Unknown]

NARRATIVE: CASE EVENT DATE: 20190301
